FAERS Safety Report 9441490 (Version 1)
Quarter: 2013Q3

REPORT INFORMATION
  Report Type: Report from Study
  Country: GB (occurrence: GB)
  Receive Date: 20130805
  Receipt Date: 20130805
  Transmission Date: 20140515
  Serious: Yes (Death)
  Sender: FDA-Public Use
  Company Number: GB-ROCHE-1256949

PATIENT
  Sex: Male

DRUGS (2)
  1. RITUXIMAB [Suspect]
     Indication: RHEUMATOID ARTHRITIS
     Route: 065
     Dates: start: 20090819
  2. LEFLUNOMIDE [Concomitant]

REACTIONS (3)
  - Sepsis [Fatal]
  - Peripheral vascular disorder [Fatal]
  - Atrial fibrillation [Fatal]
